FAERS Safety Report 14964615 (Version 1)
Quarter: 2018Q2

REPORT INFORMATION
  Report Type: Spontaneous
  Country: RS (occurrence: RS)
  Receive Date: 20180601
  Receipt Date: 20180601
  Transmission Date: 20180711
  Serious: Yes (Hospitalization, Other)
  Sender: FDA-Public Use
  Company Number: RS-MYLANLABS-2018M1036449

PATIENT
  Age: 61 Year
  Sex: Female

DRUGS (1)
  1. METHIMAZOLE. [Suspect]
     Active Substance: METHIMAZOLE
     Indication: HYPERTHYROIDISM
     Route: 065

REACTIONS (2)
  - Agranulocytosis [Recovered/Resolved]
  - Lung abscess [Recovered/Resolved]
